FAERS Safety Report 25315780 (Version 1)
Quarter: 2025Q2

REPORT INFORMATION
  Report Type: Report from Study
  Country: US (occurrence: US)
  Receive Date: 20250515
  Receipt Date: 20250515
  Transmission Date: 20250717
  Serious: Yes (Hospitalization)
  Sender: ABBVIE
  Company Number: US-ABBVIE-6279762

PATIENT
  Age: 64 Year
  Sex: Male

DRUGS (1)
  1. RINVOQ [Suspect]
     Active Substance: UPADACITINIB
     Indication: Dermatitis atopic
     Dosage: STRENGTH ;15MG
     Route: 048
     Dates: start: 202410

REACTIONS (7)
  - Spinal operation [Unknown]
  - Unevaluable event [Unknown]
  - Renal failure [Unknown]
  - Thrombosis [Unknown]
  - Surgery [Unknown]
  - Speech disorder [Unknown]
  - Memory impairment [Unknown]
